FAERS Safety Report 9292905 (Version 7)
Quarter: 2013Q3

REPORT INFORMATION
  Report Type: Report from Study
  Country: DE (occurrence: DE)
  Receive Date: 20130516
  Receipt Date: 20130719
  Transmission Date: 20140515
  Serious: Yes (Other)
  Sender: FDA-Public Use
  Company Number: DE-PFIZER INC-2013146195

PATIENT
  Age: 33 Year
  Sex: Male
  Weight: 185 kg

DRUGS (10)
  1. IDARUBICIN [Suspect]
     Indication: ACUTE MYELOID LEUKAEMIA
     Dosage: 20 MG/24H
     Dates: start: 20130328, end: 20130330
  2. CIPROFLOXACIN [Suspect]
     Indication: PROPHYLAXIS
     Dosage: 250 MG, (500 MG T-0-T)
     Route: 048
     Dates: start: 20130422, end: 20130424
  3. VFEND [Suspect]
     Indication: PROPHYLAXIS
     Dosage: 100 MG, (200 MG T-0-T)
     Dates: start: 20130328, end: 20130422
  4. CYTARABINE [Suspect]
     Indication: ACUTE MYELOID LEUKAEMIA
     Dosage: 150 MG, 1X/DAY
     Dates: start: 20130328, end: 20130401
  5. CYTARABINE [Suspect]
     Dosage: 6200 MG, 2X/DAY
     Dates: start: 20130514, end: 20130516
  6. ETOPOSIDE [Suspect]
     Indication: ACUTE MYELOID LEUKAEMIA
     Dosage: 210 MG, 1X/DAY
     Dates: start: 20130328, end: 20130330
  7. ATRA [Suspect]
     Indication: ACUTE MYELOID LEUKAEMIA
     Dosage: 90 MG, UNK
     Dates: start: 20130403, end: 20130404
  8. ATRA [Suspect]
     Dosage: 30 MG, UNK
     Dates: start: 20130405, end: 20130417
  9. ATRA [Suspect]
     Dosage: 30 MG, UNK
     Dates: start: 20130517
  10. PIP/TAZO [Suspect]
     Indication: PYREXIA
     Dosage: 1.5 G, 3X/DAY (4.5 G T-T-T)
     Route: 042
     Dates: start: 20130409, end: 20130422

REACTIONS (1)
  - Gamma-glutamyltransferase increased [Recovered/Resolved]
